FAERS Safety Report 5336250-X (Version None)
Quarter: 2007Q2

REPORT INFORMATION
  Report Type: 
  Country: None (occurrence: None)
  Receive Date: 20070315
  Receipt Date: 20070215
  Transmission Date: 20071010
  Serious: No
  Sender: FDA-Public Use
  Company Number: BDI-009146

PATIENT
  Age: 71 Year
  Sex: Female
  Weight: 87 kg

DRUGS (2)
  1. MULTIHANCE [Suspect]
     Indication: ACUTE CORONARY SYNDROME
     Dosage: 30 ML ONCE IV
     Route: 042
     Dates: start: 20070213, end: 20070213
  2. MULTIHANCE [Suspect]
     Indication: NUCLEAR MAGNETIC RESONANCE IMAGING
     Dosage: 30 ML ONCE IV
     Route: 042
     Dates: start: 20070213, end: 20070213

REACTIONS (1)
  - HYPERSENSITIVITY [None]
